FAERS Safety Report 10685682 (Version 1)
Quarter: 2014Q4

REPORT INFORMATION
  Report Type: Spontaneous
  Country: US (occurrence: US)
  Receive Date: 20141231
  Receipt Date: 20141231
  Transmission Date: 20150529
  Serious: No
  Sender: FDA-Public Use
  Company Number: US-GLAXOSMITHKLINE-US2014GSK020446

PATIENT
  Sex: Male

DRUGS (8)
  1. QVAR [Concomitant]
     Active Substance: BECLOMETHASONE DIPROPIONATE
  2. OINTMENT [Concomitant]
     Active Substance: UNSPECIFIED INGREDIENT
  3. ANTIBIOTIC (DRUG NAME UNKNOWN) [Concomitant]
     Active Substance: UNSPECIFIED INGREDIENT
  4. ADVAIR DISKUS [Suspect]
     Active Substance: FLUTICASONE PROPIONATE\SALMETEROL XINAFOATE
     Indication: ASTHMA
     Dates: start: 2008, end: 201407
  5. ADVAIR DISKUS [Suspect]
     Active Substance: FLUTICASONE PROPIONATE\SALMETEROL XINAFOATE
     Dates: start: 2008, end: 201407
  6. BENADRYL [Concomitant]
     Active Substance: DIPHENHYDRAMINE HYDROCHLORIDE
  7. MEDICATED DRESSINGS [Concomitant]
  8. STEROID (UNSPECIFIED) [Concomitant]
     Active Substance: UNSPECIFIED INGREDIENT

REACTIONS (8)
  - Drug ineffective [Unknown]
  - Fungal infection [Recovering/Resolving]
  - Eyelid infection [Recovering/Resolving]
  - Fungal skin infection [Recovering/Resolving]
  - Pain [Recovering/Resolving]
  - Epigastric discomfort [Recovering/Resolving]
  - Abdominal distension [Recovering/Resolving]
  - Exposure to allergen [Recovering/Resolving]

NARRATIVE: CASE EVENT DATE: 2008
